FAERS Safety Report 9608087 (Version 1)
Quarter: 2013Q4

REPORT INFORMATION
  Report Type: Spontaneous
  Country: US (occurrence: US)
  Receive Date: 20131009
  Receipt Date: 20131009
  Transmission Date: 20140711
  Serious: Yes (Hospitalization)
  Sender: FDA-Public Use
  Company Number: US-UCBSA-099761

PATIENT
  Age: 43 Year
  Sex: Female
  Weight: 52.2 kg

DRUGS (2)
  1. KEPPRA [Suspect]
     Indication: CONVULSION
     Dosage: STRENGTH:  500 3 TABLETS DAILY 500 MG IN THE AM AND 1000 MG IN THE PM TOTAL DAILY DOSE OF 1500 MG
     Dates: start: 2009
  2. KEPPRA [Suspect]
     Indication: CONVULSION
     Dosage: STRENGTH: 500 MG

REACTIONS (3)
  - Viral infection [Unknown]
  - Convulsion [Not Recovered/Not Resolved]
  - Drug dose omission [Unknown]
